FAERS Safety Report 6617768-6 (Version None)
Quarter: 2010Q1

REPORT INFORMATION
  Report Type: 
  Country: None (occurrence: None)
  Receive Date: 20100308
  Receipt Date: 20100302
  Transmission Date: 20100710
  Serious: Yes (Death, Hospitalization)
  Sender: FDA-Public Use
  Company Number: PHEH2010US02342

PATIENT
  Sex: Male
  Weight: 94.875 kg

DRUGS (13)
  1. EXJADE [Suspect]
     Indication: LYMPHATIC DISORDER
     Dosage: 1500 MG, QD
     Route: 048
     Dates: start: 20100111, end: 20100201
  2. EXJADE [Suspect]
     Indication: IRON OVERLOAD
  3. EXJADE [Suspect]
     Indication: BLOOD DISORDER
  4. REVLIMID [Concomitant]
     Indication: MYELODYSPLASTIC SYNDROME
     Dosage: 10 MG, UNK
     Route: 065
  5. MONOPRIL [Concomitant]
     Route: 048
  6. HYDROCHLOROTHIAZIDE [Concomitant]
     Route: 048
  7. CLARITIN [Concomitant]
     Route: 048
  8. GLUCOPHAGE [Concomitant]
     Route: 048
  9. ACTOS [Concomitant]
  10. LEVAQUIN [Concomitant]
     Indication: INFECTION
  11. INVANZ [Concomitant]
     Indication: INFECTION
     Dosage: UNK
     Dates: start: 20100101
  12. GUAIFENESIN [Concomitant]
     Indication: INCREASED BRONCHIAL SECRETION
     Dosage: 400 MG, UNK
  13. ATROVENT [Concomitant]

REACTIONS (8)
  - ASTHENIA [None]
  - CLOSTRIDIAL INFECTION [None]
  - DEATH [None]
  - EMPYEMA [None]
  - ESCHERICHIA INFECTION [None]
  - LUNG INFILTRATION [None]
  - PNEUMONIA [None]
  - SEPSIS [None]
